FAERS Safety Report 20765832 (Version 1)
Quarter: 2022Q2

REPORT INFORMATION
  Report Type: Spontaneous
  Country: US (occurrence: US)
  Receive Date: 20220428
  Receipt Date: 20220428
  Transmission Date: 20220721
  Serious: No
  Sender: FDA-Public Use
  Company Number: US-PFIZER INC-2020085708

PATIENT
  Age: 32 Year
  Sex: Female

DRUGS (7)
  1. XELJANZ XR [Suspect]
     Active Substance: TOFACITINIB CITRATE
     Indication: Rheumatoid arthritis
     Dosage: 11 MG, DAILY
     Route: 048
     Dates: start: 2017
  2. XELJANZ XR [Suspect]
     Active Substance: TOFACITINIB CITRATE
     Dosage: 11 MG, UNK
     Dates: start: 20181120
  3. MODERNA COVID-19 VACCINE [Concomitant]
     Active Substance: ELASOMERAN
  4. METHOTREXATE [Concomitant]
     Active Substance: METHOTREXATE
     Dosage: 1 G
  5. HYDROXYCHLOROQUINE SULFATE [Concomitant]
     Active Substance: HYDROXYCHLOROQUINE SULFATE
  6. TOPAMAX [Concomitant]
     Active Substance: TOPIRAMATE
     Dosage: 100 MG
  7. MEDROL ACNE [Concomitant]
     Dosage: 16 MG

REACTIONS (2)
  - Product dose omission issue [Unknown]
  - Pain [Unknown]
